FAERS Safety Report 15885288 (Version 1)
Quarter: 2019Q1

REPORT INFORMATION
  Report Type: Spontaneous
  Country: ZA (occurrence: ZA)
  Receive Date: 20190129
  Receipt Date: 20190129
  Transmission Date: 20190417
  Serious: Yes (Other)
  Sender: FDA-Public Use
  Company Number: ZA-BAYER-2019-016028

PATIENT
  Age: 30 Year
  Sex: Female

DRUGS (2)
  1. MIRENA [Suspect]
     Active Substance: LEVONORGESTREL
     Indication: CONTRACEPTION
  2. MIRENA [Suspect]
     Active Substance: LEVONORGESTREL
     Indication: CONTRACEPTION
     Dosage: 20 MCG/24HR, CONT
     Route: 015
     Dates: start: 201310, end: 201811

REACTIONS (23)
  - Ocular hyperaemia [Unknown]
  - Muscle spasms [Not Recovered/Not Resolved]
  - Visual impairment [Unknown]
  - Paraesthesia [Not Recovered/Not Resolved]
  - Daydreaming [Not Recovered/Not Resolved]
  - Memory impairment [Not Recovered/Not Resolved]
  - Dry eye [Recovering/Resolving]
  - Dyspareunia [Not Recovered/Not Resolved]
  - Dry mouth [Not Recovered/Not Resolved]
  - Joint stiffness [Not Recovered/Not Resolved]
  - Palpitations [Not Recovered/Not Resolved]
  - Dizziness [Not Recovered/Not Resolved]
  - Vision blurred [Not Recovered/Not Resolved]
  - Insomnia [Not Recovered/Not Resolved]
  - Alopecia [Not Recovered/Not Resolved]
  - Migraine [Not Recovered/Not Resolved]
  - Mood swings [Not Recovered/Not Resolved]
  - Abdominal pain [Not Recovered/Not Resolved]
  - Swelling [Recovering/Resolving]
  - Dry skin [Not Recovered/Not Resolved]
  - Anxiety [Not Recovered/Not Resolved]
  - Muscular weakness [Not Recovered/Not Resolved]
  - Nausea [Not Recovered/Not Resolved]

NARRATIVE: CASE EVENT DATE: 2013
